FAERS Safety Report 8050732-1 (Version None)
Quarter: 2012Q1

REPORT INFORMATION
  Report Type: 
  Country: None (occurrence: None)
  Receive Date: 20120117
  Receipt Date: 20120117
  Transmission Date: 20120608
  Serious: Yes (Other)
  Sender: FDA-Public Use
  Company Number: None

PATIENT
  Age: 54 Year
  Sex: Female
  Weight: 75.749 kg

DRUGS (1)
  1. XYLOCAINE [Suspect]
     Indication: NEURALGIA
     Dosage: 350 MG
     Route: 041
     Dates: start: 20120111, end: 20120111

REACTIONS (7)
  - AGGRESSION [None]
  - PRODUCT SUBSTITUTION ISSUE [None]
  - MUSCULOSKELETAL STIFFNESS [None]
  - SPEECH DISORDER [None]
  - TRANCE [None]
  - FEELING ABNORMAL [None]
  - UNRESPONSIVE TO STIMULI [None]
